FAERS Safety Report 7959542-4 (Version None)
Quarter: 2011Q4

REPORT INFORMATION
  Report Type: 
  Country: None (occurrence: None)
  Receive Date: 20111206
  Receipt Date: 20111128
  Transmission Date: 20120403
  Serious: Yes (Other)
  Sender: FDA-Public Use
  Company Number: US-ASTRAZENECA-2010SE15066

PATIENT
  Age: 56 Year
  Sex: Male

DRUGS (1)
  1. TOPROL-XL [Suspect]
     Route: 048

REACTIONS (7)
  - MALAISE [None]
  - FALL [None]
  - CONCUSSION [None]
  - CHEST PAIN [None]
  - RIB FRACTURE [None]
  - DIZZINESS [None]
  - DRUG DOSE OMISSION [None]
